FAERS Safety Report 4319806-2 (Version None)
Quarter: 2004Q1

REPORT INFORMATION
  Report Type: 
  Country: None (occurrence: None)
  Receive Date: 20040316
  Receipt Date: 20040311
  Transmission Date: 20041129
  Serious: Yes (Death)
  Sender: FDA-Public Use
  Company Number: 04-03-0360

PATIENT
  Age: 51 Year
  Sex: Female

DRUGS (1)
  1. CLOZAPINE [Suspect]
     Indication: PSYCHOTIC DISORDER
     Dosage: 100MG QD ORAL
     Route: 048
     Dates: start: 20030901, end: 20040201

REACTIONS (3)
  - CARDIAC ARREST [None]
  - HYPERTENSION [None]
  - RESPIRATORY FAILURE [None]
